FAERS Safety Report 10035487 (Version 1)
Quarter: 2020Q3

REPORT INFORMATION
  Report Type: Spontaneous
  Country: CA (occurrence: None)
  Receive Date: 20140321
  Receipt Date: 20140321
  Transmission Date: 20201105
  Serious: Yes (Death)
  Sender: FDA-Public Use
  Company Number: 2014CA00232

PATIENT

DRUGS (3)
  1. CEDIRANIB. [Suspect]
     Active Substance: CEDIRANIB
     Indication: NON-SMALL CELL LUNG CANCER
     Route: 048
  2. CARBOPLATIN (CARBOPLATIN) INJECTION [Suspect]
     Active Substance: CARBOPLATIN
     Indication: NON-SMALL CELL LUNG CANCER
     Dosage: AREA UNDER THE CONCENTRATION TIME CURVE 6, 30 MIN, EVERY 3 WEEKS FOR 4?6 CYCLES
  3. PACLITAXEL (PACLITAXEL) [Suspect]
     Active Substance: PACLITAXEL
     Indication: NON-SMALL CELL LUNG CANCER
     Dosage: 200 MG/M2, OVER 3 H, EVERY 3 WEEKS FOR 4?6 CYCLES, INTRAVNEOUS?
     Route: 042

REACTIONS (1)
  - Leukoencephalopathy [None]
